FAERS Safety Report 9806134 (Version 1)
Quarter: 2014Q1

REPORT INFORMATION
  Report Type: Spontaneous
  Country: ES (occurrence: ES)
  Receive Date: 20140109
  Receipt Date: 20140109
  Transmission Date: 20141002
  Serious: Yes (Death, Other)
  Sender: FDA-Public Use
  Company Number: PHHY2014ES001457

PATIENT
  Age: 61 Year
  Sex: Male

DRUGS (4)
  1. ZOLEDRONIC ACID [Suspect]
     Indication: METASTASES TO BONE
  2. DOCETAXEL [Suspect]
     Indication: PROSTATE CANCER STAGE IV
  3. MITOXANTRONE [Suspect]
     Indication: PROSTATE CANCER STAGE IV
  4. ABIRATERONE [Suspect]
     Indication: PROSTATE CANCER STAGE IV

REACTIONS (9)
  - Prostate cancer [Fatal]
  - Metastases to bone [Fatal]
  - Disease progression [Fatal]
  - Hungry bone syndrome [Unknown]
  - Hypocalcaemia [Unknown]
  - Blood parathyroid hormone increased [Unknown]
  - Vitamin D decreased [Unknown]
  - Asthenia [Unknown]
  - Bone pain [Unknown]
